FAERS Safety Report 10010215 (Version 2)
Quarter: 2014Q1

REPORT INFORMATION
  Report Type: Spontaneous
  Country: US (occurrence: US)
  Receive Date: 20140313
  Receipt Date: 20140313
  Transmission Date: 20141002
  Serious: Yes (Disabling)
  Sender: FDA-Public Use
  Company Number: US-GE HEALTHCARE MEDICAL DIAGNOSTICS-OSCN-PR-1002S-0052

PATIENT
  Age: 53 Year
  Sex: Female

DRUGS (9)
  1. OMNISCAN [Suspect]
     Indication: CONVULSION
     Route: 042
     Dates: start: 20061022, end: 20061022
  2. OMNISCAN [Suspect]
     Indication: CONVULSION
     Route: 042
     Dates: start: 20061026, end: 20061026
  3. OMNISCAN [Suspect]
     Indication: ENCEPHALOPATHY
     Route: 042
     Dates: start: 20061104, end: 20061104
  4. MAGNEVIST [Suspect]
     Indication: OVARIAN CANCER
     Route: 042
     Dates: start: 20030929, end: 20030929
  5. MAGNEVIST [Suspect]
     Indication: PRODUCT USED FOR UNKNOWN INDICATION
     Route: 042
     Dates: start: 20040902, end: 20040902
  6. MAGNEVIST [Suspect]
     Indication: INFECTION
     Route: 042
     Dates: start: 20060721, end: 20060721
  7. MAGNEVIST [Suspect]
     Indication: INFECTION
     Route: 042
     Dates: start: 20061009, end: 20061009
  8. MAGNEVIST [Suspect]
     Indication: CONVULSION
     Route: 042
     Dates: start: 20061109, end: 20061109
  9. MAGNEVIST [Suspect]
     Indication: CONVULSION
     Route: 042
     Dates: start: 20061227, end: 20061227

REACTIONS (1)
  - Nephrogenic systemic fibrosis [Not Recovered/Not Resolved]
